FAERS Safety Report 6326139-1 (Version None)
Quarter: 2009Q3

REPORT INFORMATION
  Report Type: 
  Country: None (occurrence: None)
  Receive Date: 20090824
  Receipt Date: 20090821
  Transmission Date: 20100115
  Serious: Yes (Life-Threatening, Hospitalization, Other)
  Sender: FDA-Public Use
  Company Number: PHHY2009JP27871

PATIENT
  Sex: Female

DRUGS (4)
  1. FEMARA [Suspect]
     Indication: BREAST CANCER
     Dosage: 2.5 MG/DAY
     Route: 048
     Dates: start: 20090612, end: 20090626
  2. TAXOTERE [Concomitant]
     Dosage: 90 MG, UNK
     Route: 042
     Dates: start: 20090401, end: 20090514
  3. GASTER D [Concomitant]
     Indication: GASTRIC ULCER
     Dosage: 40 MG, UNK
     Route: 048
     Dates: start: 20090407, end: 20090625
  4. RINDERON [Concomitant]
     Indication: DECREASED APPETITE
     Dosage: 4 MG, UNK
     Route: 048
     Dates: start: 20090522, end: 20090618

REACTIONS (6)
  - CHEST X-RAY ABNORMAL [None]
  - COUGH [None]
  - DYSPNOEA [None]
  - PNEUMOCYSTIS JIROVECI PNEUMONIA [None]
  - PRODUCTIVE COUGH [None]
  - PYREXIA [None]
